APPROVED DRUG PRODUCT: CORDRAN N
Active Ingredient: FLURANDRENOLIDE; NEOMYCIN SULFATE
Strength: 0.05%;EQ 3.5MG BASE/GM
Dosage Form/Route: CREAM;TOPICAL
Application: N050346 | Product #001
Applicant: ELI LILLY AND CO
Approved: Approved Prior to Jan 1, 1982 | RLD: No | RS: No | Type: DISCN